FAERS Safety Report 25019639 (Version 2)
Quarter: 2025Q1

REPORT INFORMATION
  Report Type: Spontaneous
  Country: TR (occurrence: TR)
  Receive Date: 20250227
  Receipt Date: 20250314
  Transmission Date: 20250408
  Serious: Yes (Hospitalization)
  Sender: TEVA
  Company Number: TR-TEVA-VS-3303437

PATIENT
  Age: 38 Year
  Sex: Female

DRUGS (6)
  1. PREDNISOLONE [Suspect]
     Active Substance: PREDNISOLONE
     Indication: Blindness
     Dosage: EYE DROP
     Route: 047
  2. MOXIFLOXACIN [Suspect]
     Active Substance: MOXIFLOXACIN
     Indication: Blindness
     Dosage: EYE DROP
     Route: 047
  3. MOXIFLOXACIN [Suspect]
     Active Substance: MOXIFLOXACIN
     Indication: Blindness
     Route: 065
  4. METHYLPREDNISOLONE [Suspect]
     Active Substance: METHYLPREDNISOLONE
     Indication: Blindness
     Route: 048
  5. CEFTAZIDIME [Suspect]
     Active Substance: CEFTAZIDIME
     Indication: Blindness
     Route: 050
  6. VANCOMYCIN [Suspect]
     Active Substance: VANCOMYCIN
     Indication: Blindness
     Route: 050

REACTIONS (3)
  - Aspergillus infection [Recovering/Resolving]
  - Endophthalmitis [Recovering/Resolving]
  - Osteomyelitis [Recovering/Resolving]
